FAERS Safety Report 13704784 (Version 1)
Quarter: 2017Q2

REPORT INFORMATION
  Report Type: Spontaneous
  Country: US (occurrence: US)
  Receive Date: 20170629
  Receipt Date: 20170629
  Transmission Date: 20170830
  Serious: Yes (Hospitalization)
  Sender: FDA-Public Use
  Company Number: None

PATIENT
  Age: 77 Year
  Sex: Male

DRUGS (7)
  1. PROTEIN [Concomitant]
     Active Substance: PROTEIN
  2. OMEPRAZOLE. [Concomitant]
     Active Substance: OMEPRAZOLE
  3. LONSURF [Suspect]
     Active Substance: TIPIRACIL HYDROCHLORIDE\TRIFLURIDINE
     Indication: RECTOSIGMOID CANCER
     Route: 048
     Dates: start: 20170508
  4. SALINE NASAL [Concomitant]
     Active Substance: SODIUM CHLORIDE
  5. VITAMIN B12 [Concomitant]
     Active Substance: CYANOCOBALAMIN
  6. MULTI VITAMIN [Concomitant]
     Active Substance: VITAMINS
  7. TAGAMET [Concomitant]
     Active Substance: CIMETIDINE

REACTIONS (5)
  - Nausea [None]
  - Diarrhoea [None]
  - Fatigue [None]
  - Abdominal pain [None]
  - Constipation [None]

NARRATIVE: CASE EVENT DATE: 201705
